FAERS Safety Report 10113961 (Version 2)
Quarter: 2015Q1

REPORT INFORMATION
  Report Type: Other
  Country: US (occurrence: US)
  Receive Date: 20140425
  Receipt Date: 20150119
  Transmission Date: 20150720
  Serious: Yes (Hospitalization, Other)
  Sender: FDA-Public Use
  Company Number: US-GSKPPD-2014GSK013249

PATIENT
  Age: 54 Year
  Sex: Male

DRUGS (3)
  1. HEPARIN [Concomitant]
     Active Substance: HEPARIN SODIUM
     Route: 058
  2. AVANDIA [Suspect]
     Active Substance: ROSIGLITAZONE MALEATE
     Indication: DIABETES MELLITUS
     Dosage: AVANDIA WAS NOT LISTED AMONG THE PATIENTS RECORDS REVIEWED.
     Route: 048
  3. LASIX [Concomitant]
     Active Substance: FUROSEMIDE
     Route: 042

REACTIONS (3)
  - Cardiac death [Unknown]
  - Cardiac failure congestive [Unknown]
  - Coronary artery disease [Unknown]

NARRATIVE: CASE EVENT DATE: 20060609
